FAERS Safety Report 5491128-6 (Version None)
Quarter: 2007Q4

REPORT INFORMATION
  Report Type: 
  Country: None (occurrence: None)
  Receive Date: 20071019
  Receipt Date: 20071009
  Transmission Date: 20080405
  Serious: Yes (Other)
  Sender: FDA-Public Use
  Company Number: US-PFIZER INC-2007074912

PATIENT
  Sex: Female
  Weight: 126.81 kg

DRUGS (9)
  1. CHANTIX [Suspect]
     Indication: SMOKING CESSATION THERAPY
  2. TEGRETOL [Interacting]
     Indication: CONVULSION
  3. DILANTIN [Interacting]
  4. ALL OTHER THERAPEUTIC PRODUCTS [Concomitant]
  5. SYNTHROID [Concomitant]
  6. KLONOPIN [Concomitant]
  7. CYMBALTA [Concomitant]
  8. LYRICA [Concomitant]
  9. NEURONTIN [Concomitant]

REACTIONS (8)
  - ANTICONVULSANT DRUG LEVEL BELOW THERAPEUTIC [None]
  - BLOOD GLUCOSE ABNORMAL [None]
  - DIZZINESS [None]
  - DRUG INTERACTION [None]
  - DYSPHONIA [None]
  - GAIT DISTURBANCE [None]
  - MUSCULAR WEAKNESS [None]
  - SPEECH DISORDER [None]
